FAERS Safety Report 17650701 (Version 2)
Quarter: 2020Q2

REPORT INFORMATION
  Report Type: Report from Study
  Country: NL (occurrence: NL)
  Receive Date: 20200408
  Receipt Date: 20200423
  Transmission Date: 20200713
  Serious: Yes (Death, Other)
  Sender: FDA-Public Use
  Company Number: NL-TOLMAR, INC.-20NL020935

PATIENT
  Sex: Male

DRUGS (3)
  1. ELIGARD [Suspect]
     Active Substance: LEUPROLIDE ACETATE
     Dosage: 45 MG, Q 6 MONTH
     Route: 058
     Dates: start: 20190923
  2. ELIGARD [Suspect]
     Active Substance: LEUPROLIDE ACETATE
     Indication: PROSTATE CANCER
     Dosage: 45 MG, Q 6 MONTH
     Route: 058
     Dates: start: 20190322
  3. ELIGARD [Suspect]
     Active Substance: LEUPROLIDE ACETATE
     Dosage: 45 MG, Q 6 MONTH
     Route: 058
     Dates: start: 20200302

REACTIONS (1)
  - Death [Fatal]
